FAERS Safety Report 9090082 (Version 1)
Quarter: 2013Q1

REPORT INFORMATION
  Report Type: Report from Study
  Country: US (occurrence: US)
  Receive Date: 20130201
  Receipt Date: 20130201
  Transmission Date: 20140127
  Serious: No
  Sender: FDA-Public Use
  Company Number: US-ABBOTT-12P-163-1021137-00

PATIENT
  Sex: 0

DRUGS (9)
  1. HUMIRA [Suspect]
     Indication: PSORIATIC ARTHROPATHY
     Dates: start: 201103, end: 201103
  2. HUMIRA [Suspect]
     Indication: PSORIASIS
     Dosage: 1 WEEK AFTER INITIAL DOSE
     Dates: start: 201103, end: 201103
  3. HUMIRA [Suspect]
     Dates: start: 201103, end: 201210
  4. HUMIRA [Suspect]
     Dates: start: 201210, end: 201210
  5. HUMIRA [Suspect]
     Dosage: 1 WEEK AFTER 80 MG LOADING DOSE
     Dates: start: 201210, end: 201210
  6. HUMIRA [Suspect]
     Dates: start: 201210, end: 201212
  7. CITRALINE [Concomitant]
     Indication: DEPRESSION
  8. VERAMYST [Concomitant]
     Indication: HYPERSENSITIVITY
  9. SINGULAIR [Concomitant]
     Indication: HYPERSENSITIVITY

REACTIONS (2)
  - Psoriasis [Not Recovered/Not Resolved]
  - Psoriatic arthropathy [Not Recovered/Not Resolved]
